FAERS Safety Report 18125788 (Version 1)
Quarter: 2020Q3

REPORT INFORMATION
  Report Type: Other
  Country: FR (occurrence: FR)
  Receive Date: 20200807
  Receipt Date: 20200807
  Transmission Date: 20201103
  Serious: Yes (Hospitalization)
  Sender: FDA-Public Use
  Company Number: FR-ALSI-202000283

PATIENT
  Age: 28 Year
  Sex: Male

DRUGS (1)
  1. NITROUS OXIDE. [Suspect]
     Active Substance: NITROUS OXIDE
     Indication: SUBSTANCE USE
     Route: 055

REACTIONS (7)
  - Confusional state [Recovered/Resolved]
  - Behaviour disorder [Recovered/Resolved]
  - Hyperthermia [Recovered/Resolved]
  - Gastrointestinal pain [Recovered/Resolved]
  - Substance use [Recovered/Resolved]
  - Aphasia [Recovered/Resolved]
  - Tremor [Recovered/Resolved]
